FAERS Safety Report 6718581-1 (Version None)
Quarter: 2010Q2

REPORT INFORMATION
  Report Type: 
  Country: None (occurrence: None)
  Receive Date: 20100503
  Receipt Date: 20100415
  Transmission Date: 20101027
  Serious: Yes (Life-Threatening)
  Sender: FDA-Public Use
  Company Number: LIT-10-0024-W

PATIENT
  Age: 83 Year
  Sex: Female

DRUGS (3)
  1. METFORMIN HCL [Suspect]
     Dosage: 1000MG/3 TIMES A DAY/047
  2. ASPIRIN [Concomitant]
  3. IRBESARTAN WITH HYDROCHLOROTHIAZIDE [Concomitant]

REACTIONS (8)
  - COLD SWEAT [None]
  - CONFUSIONAL STATE [None]
  - DEHYDRATION [None]
  - DIARRHOEA [None]
  - DISORIENTATION [None]
  - DYSPNOEA [None]
  - LACTIC ACIDOSIS [None]
  - RENAL FAILURE ACUTE [None]
